FAERS Safety Report 8411394-4 (Version None)
Quarter: 2012Q2

REPORT INFORMATION
  Report Type: 
  Country: None (occurrence: None)
  Receive Date: 20120605
  Receipt Date: 20120508
  Transmission Date: 20120825
  Serious: No
  Sender: FDA-Public Use
  Company Number: US-AMGEN-USASP2012029034

PATIENT
  Age: 63 Year
  Sex: Female

DRUGS (1)
  1. ENBREL [Suspect]
     Indication: RHEUMATOID ARTHRITIS
     Dosage: 50 MG, QWK
     Dates: start: 19990801

REACTIONS (9)
  - DISCOMFORT [None]
  - CHEST DISCOMFORT [None]
  - INTERVERTEBRAL DISC PROTRUSION [None]
  - TENSION HEADACHE [None]
  - MIDDLE INSOMNIA [None]
  - ACCIDENT [None]
  - MUSCLE TIGHTNESS [None]
  - MUSCULOSKELETAL PAIN [None]
  - BURNING SENSATION [None]
